FAERS Safety Report 7384765-5 (Version None)
Quarter: 2011Q1

REPORT INFORMATION
  Report Type: 
  Country: None (occurrence: None)
  Receive Date: 20110330
  Receipt Date: 20110325
  Transmission Date: 20110831
  Serious: Yes (Life-Threatening)
  Sender: FDA-Public Use
  Company Number: PHHY2011US21703

PATIENT
  Sex: Female

DRUGS (4)
  1. RECLAST [Suspect]
     Indication: OSTEOPOROSIS
     Dosage: 5 MG,
     Route: 042
  2. TOPROL-XL [Concomitant]
     Indication: TACHYCARDIA
     Dosage: 25 MG,
     Route: 048
  3. RECLAST [Suspect]
     Dosage: 5 MG, UNK
     Route: 042
  4. PROZONE [Concomitant]
     Indication: DEPRESSION
     Dosage: 7 MG,
     Route: 048

REACTIONS (4)
  - BONE DISORDER [None]
  - BONE PAIN [None]
  - FEELING ABNORMAL [None]
  - ARTHRALGIA [None]
